FAERS Safety Report 6971965-9 (Version None)
Quarter: 2010Q3

REPORT INFORMATION
  Report Type: 
  Country: None (occurrence: None)
  Receive Date: 20100908
  Receipt Date: 20100908
  Transmission Date: 20110219
  Serious: Yes (Life-Threatening)
  Sender: FDA-Public Use
  Company Number: None

PATIENT
  Age: 83 Year
  Sex: Female
  Weight: 63.5036 kg

DRUGS (2)
  1. NITROFURANTOIN [Suspect]
     Indication: CYSTITIS
     Dosage: 1 CAPSULE - TWICE DAILY  TOOK 1 TABLET ONLY
  2. ANTIBIOTIC INJECTIONS [Concomitant]

REACTIONS (5)
  - ABASIA [None]
  - BURNING SENSATION [None]
  - DYSSTASIA [None]
  - PAIN [None]
  - TREMOR [None]
